FAERS Safety Report 15690778 (Version 1)
Quarter: 2018Q4

REPORT INFORMATION
  Report Type: Spontaneous
  Country: US (occurrence: US)
  Receive Date: 20181205
  Receipt Date: 20181205
  Transmission Date: 20190205
  Serious: No
  Sender: FDA-Public Use
  Company Number: US-THERAVANCE-2018-000063

PATIENT
  Age: 54 Year
  Sex: Male

DRUGS (2)
  1. VIBATIV [Suspect]
     Active Substance: TELAVANCIN HYDROCHLORIDE
     Indication: INFECTION
  2. VIBATIV [Suspect]
     Active Substance: TELAVANCIN HYDROCHLORIDE
     Indication: INFLAMMATION
     Dosage: 1500 MG, QD
     Route: 042
     Dates: start: 20180811, end: 20180820

REACTIONS (2)
  - Chills [Unknown]
  - Off label use [None]

NARRATIVE: CASE EVENT DATE: 201808
